FAERS Safety Report 15301497 (Version 2)
Quarter: 2020Q1

REPORT INFORMATION
  Report Type: Report from Study
  Country: US (occurrence: US)
  Receive Date: 20180821
  Receipt Date: 20200313
  Transmission Date: 20200409
  Serious: No
  Sender: FDA-Public Use
  Company Number: US-SA-2018SA227521

PATIENT
  Age: 60 Year
  Sex: Female

DRUGS (2)
  1. TERIFLUNOMIDE. [Suspect]
     Active Substance: TERIFLUNOMIDE
     Dosage: 14 MG, QD
     Route: 048
     Dates: start: 20180530
  2. CALCIUM [Concomitant]
     Active Substance: CALCIUM
     Dosage: UNK
     Dates: start: 20180701

REACTIONS (3)
  - Anxiety [Unknown]
  - Urinary incontinence [Unknown]
  - Abdominal discomfort [Unknown]
